FAERS Safety Report 10455476 (Version 1)
Quarter: 2014Q3

REPORT INFORMATION
  Report Type: Spontaneous
  Country: US (occurrence: None)
  Receive Date: 20140915
  Receipt Date: 20140915
  Transmission Date: 20150326
  Serious: Yes (Other)
  Sender: FDA-Public Use
  Company Number: None

PATIENT
  Age: 55 Year
  Sex: Female
  Weight: 78.93 kg

DRUGS (1)
  1. PRAVASTATIN [Suspect]
     Active Substance: PRAVASTATIN\PRAVASTATIN SODIUM
     Indication: BLOOD CHOLESTEROL INCREASED
     Dosage: 2 PILLS ONCE DAILY TAKEN BY MOUTH
     Route: 048
     Dates: start: 20140826, end: 20140910

REACTIONS (7)
  - Hypertension [None]
  - Pollakiuria [None]
  - Headache [None]
  - Dizziness [None]
  - Mental impairment [None]
  - Impaired work ability [None]
  - Speech disorder [None]

NARRATIVE: CASE EVENT DATE: 20140909
